FAERS Safety Report 11748508 (Version 1)
Quarter: 2015Q4

REPORT INFORMATION
  Report Type: Spontaneous
  Country: US (occurrence: None)
  Receive Date: 20151116
  Receipt Date: 20151116
  Transmission Date: 20160304
  Serious: Yes (Hospitalization)
  Sender: FDA-Public Use
  Company Number: None

PATIENT
  Age: 62 Year
  Sex: Male
  Weight: 59.5 kg

DRUGS (15)
  1. HARVONI [Suspect]
     Active Substance: LEDIPASVIR\SOFOSBUVIR
     Indication: HEPATITIS C
     Route: 048
     Dates: start: 20150724, end: 20151023
  2. VENTOLIN HFA [Concomitant]
     Active Substance: ALBUTEROL SULFATE
  3. LISINOPRIL. [Concomitant]
     Active Substance: LISINOPRIL
  4. AZIT:HROMYCIN [Concomitant]
  5. KEFLEX [Concomitant]
     Active Substance: CEPHALEXIN
  6. ADVAIR HFA [Concomitant]
     Active Substance: FLUTICASONE PROPIONATE\SALMETEROL XINAFOATE
  7. OVACE [Concomitant]
     Active Substance: SULFACETAMIDE SODIUM
  8. CEFTIN [Concomitant]
     Active Substance: CEFUROXIME AXETIL
  9. ALBUTEROL. [Concomitant]
     Active Substance: ALBUTEROL
  10. SLOW-*MAG 64 [Concomitant]
  11. METAMUCIL [Concomitant]
     Active Substance: PLANTAGO SEED
  12. HYDROXYZINE [Concomitant]
     Active Substance: HYDROXYZINE\HYDROXYZINE HYDROCHLORIDE
  13. ACIDOPHILUS [Concomitant]
     Active Substance: LACTOBACILLUS ACIDOPHILUS
  14. MEDROL [Concomitant]
     Active Substance: METHYLPREDNISOLONE
  15. ALBUTEROL NEBULIZER [Concomitant]
     Active Substance: ALBUTEROL

REACTIONS (5)
  - Acidosis [None]
  - Asthma [None]
  - Respiratory failure [None]
  - Mental status changes [None]
  - Therapy cessation [None]

NARRATIVE: CASE EVENT DATE: 20150903
